FAERS Safety Report 6483549-X (Version None)
Quarter: 2009Q4

REPORT INFORMATION
  Report Type: 
  Country: None (occurrence: None)
  Receive Date: 20091209
  Receipt Date: 20091202
  Transmission Date: 20100525
  Serious: Yes (Death)
  Sender: FDA-Public Use
  Company Number: US-GILEAD-2009-0025786

PATIENT
  Sex: Female
  Weight: 122.58 kg

DRUGS (14)
  1. LETAIRIS [Suspect]
     Indication: PULMONARY ARTERIAL HYPERTENSION
     Route: 048
     Dates: start: 20090409, end: 20091201
  2. LASIX [Concomitant]
  3. FLOVENT [Concomitant]
  4. PROAIR HFA [Concomitant]
  5. NOVOLOG [Concomitant]
  6. ACTOS [Concomitant]
  7. DARVOCET [Concomitant]
  8. ATIVAN [Concomitant]
  9. TRAZODONE [Concomitant]
  10. CYMBALTA [Concomitant]
  11. NEXIUM [Concomitant]
  12. MAGNESIUM OXIDE [Concomitant]
  13. POTASSIUM CHLORIDE [Concomitant]
  14. ASCORBIC ACID [Concomitant]

REACTIONS (1)
  - DEATH [None]
